FAERS Safety Report 23340174 (Version 2)
Quarter: 2024Q1

REPORT INFORMATION
  Report Type: Spontaneous
  Country: SE (occurrence: SE)
  Receive Date: 20231227
  Receipt Date: 20240328
  Transmission Date: 20240409
  Serious: Yes (Disabling)
  Sender: FDA-Public Use
  Company Number: None

PATIENT
  Age: 39 Year
  Sex: Female
  Weight: 67 kg

DRUGS (6)
  1. LISDEXAMFETAMINE DIMESYLATE [Suspect]
     Active Substance: LISDEXAMFETAMINE DIMESYLATE
     Indication: Attention deficit hyperactivity disorder
     Dosage: 30 MILLIGRAM, QD
     Route: 048
     Dates: start: 202304
  2. LISDEXAMFETAMINE DIMESYLATE [Suspect]
     Active Substance: LISDEXAMFETAMINE DIMESYLATE
     Dosage: 20 MILLIGRAM, QD
     Route: 048
  3. LISDEXAMFETAMINE DIMESYLATE [Suspect]
     Active Substance: LISDEXAMFETAMINE DIMESYLATE
     Dosage: 50 MILLIGRAM, QD
     Route: 048
  4. Folsyra eql pharma [Concomitant]
     Dosage: 1 MILLIGRAM, QD
     Route: 048
  5. LAMOTRIGINE [Concomitant]
     Active Substance: LAMOTRIGINE
     Dosage: 50 MILLIGRAM, Q12H
     Route: 048
     Dates: start: 2011
  6. LAMOTRIGINE [Concomitant]
     Active Substance: LAMOTRIGINE
     Dosage: 200 MILLIGRAM, Q12H
     Route: 048

REACTIONS (23)
  - Memory impairment [Not Recovered/Not Resolved]
  - Restlessness [Not Recovered/Not Resolved]
  - Stress [Not Recovered/Not Resolved]
  - Psychomotor hyperactivity [Not Recovered/Not Resolved]
  - Fatigue [Not Recovered/Not Resolved]
  - Confusional state [Not Recovered/Not Resolved]
  - Impulsive behaviour [Recovering/Resolving]
  - Apathy [Recovering/Resolving]
  - Irritability [Not Recovered/Not Resolved]
  - Hyperacusis [Not Recovered/Not Resolved]
  - Poverty of thought content [Not Recovered/Not Resolved]
  - Distractibility [Not Recovered/Not Resolved]
  - Disturbance in attention [Not Recovered/Not Resolved]
  - Movement disorder [Not Recovered/Not Resolved]
  - Mental impairment [Not Recovered/Not Resolved]
  - Drug ineffective [Not Recovered/Not Resolved]
  - Weight decreased [Recovered/Resolved]
  - Abdominal discomfort [Recovered/Resolved]
  - Dizziness [Recovering/Resolving]
  - Headache [Recovered/Resolved]
  - Product substitution issue [Unknown]
  - Therapeutic product effect decreased [Not Recovered/Not Resolved]
  - Product lot number issue [Unknown]

NARRATIVE: CASE EVENT DATE: 20230101
